FAERS Safety Report 26169595 (Version 1)
Quarter: 2025Q4

REPORT INFORMATION
  Report Type: Spontaneous
  Country: US (occurrence: US)
  Receive Date: 20251217
  Receipt Date: 20251217
  Transmission Date: 20260117
  Serious: Yes (Other)
  Sender: OTSUKA
  Company Number: US-OTSUKA-2025_030546

PATIENT
  Age: 39 Year
  Sex: Female

DRUGS (2)
  1. REXULTI [Suspect]
     Active Substance: BREXPIPRAZOLE
     Indication: Depression
     Dosage: 1 MG, DAILY
     Route: 061
     Dates: start: 20250429, end: 20250613
  2. REXULTI [Suspect]
     Active Substance: BREXPIPRAZOLE
     Dosage: 0.5 MG, DAILY (FOR 3 WEEKS)
     Route: 061
     Dates: start: 20250408, end: 20250428

REACTIONS (3)
  - Oedema peripheral [Recovered/Resolved]
  - Blood glucose increased [Recovered/Resolved]
  - Blood pressure increased [Recovered/Resolved]

NARRATIVE: CASE EVENT DATE: 20250513
